FAERS Safety Report 19332258 (Version 2)
Quarter: 2021Q2

REPORT INFORMATION
  Report Type: Report from Study
  Country: BR (occurrence: BR)
  Receive Date: 20210529
  Receipt Date: 20210531
  Transmission Date: 20210717
  Serious: Yes (Hospitalization, Other)
  Sender: FDA-Public Use
  Company Number: BR-JNJFOC-20210546270

PATIENT
  Age: 2 Decade
  Sex: Female

DRUGS (12)
  1. THALIDOMIDE [Concomitant]
     Active Substance: THALIDOMIDE
  2. REMICADE [Suspect]
     Active Substance: INFLIXIMAB
     Route: 042
     Dates: start: 20210201
  3. METHOTREXATE. [Suspect]
     Active Substance: METHOTREXATE
  4. OMEPRAZOLE. [Concomitant]
     Active Substance: OMEPRAZOLE
  5. AMYTRIL [Concomitant]
     Active Substance: AMITRIPTYLINE HYDROCHLORIDE
  6. REMICADE [Suspect]
     Active Substance: INFLIXIMAB
     Route: 042
     Dates: start: 20210427
  7. AZATHIOPRINE. [Concomitant]
     Active Substance: AZATHIOPRINE
  8. REMICADE [Suspect]
     Active Substance: INFLIXIMAB
     Indication: COLITIS
     Route: 042
     Dates: start: 2020
  9. REMICADE [Suspect]
     Active Substance: INFLIXIMAB
     Route: 042
     Dates: start: 20210301
  10. URSACOL [Concomitant]
     Active Substance: URSODIOL
  11. REMICADE [Suspect]
     Active Substance: INFLIXIMAB
     Indication: COLITIS ULCERATIVE
     Dosage: 2 VIALS EVERY 2 MONTHS
     Route: 042
     Dates: start: 2015, end: 2019
  12. HUMIRA [Suspect]
     Active Substance: ADALIMUMAB

REACTIONS (4)
  - Cerebrovascular accident [Unknown]
  - Drug ineffective [Unknown]
  - Colitis [Unknown]
  - Pyoderma gangrenosum [Recovering/Resolving]

NARRATIVE: CASE EVENT DATE: 2020
